FAERS Safety Report 25475976 (Version 2)
Quarter: 2025Q2

REPORT INFORMATION
  Report Type: Spontaneous
  Country: US (occurrence: US)
  Receive Date: 20250625
  Receipt Date: 20250626
  Transmission Date: 20250717
  Serious: No
  Sender: BRISTOL-MYERS SQUIBB COMPANY
  Company Number: US-BRISTOL-MYERS SQUIBB COMPANY-2025-089976

PATIENT
  Age: 38 Year
  Sex: Female

DRUGS (2)
  1. ORENCIA [Suspect]
     Active Substance: ABATACEPT
     Indication: Rheumatoid arthritis
     Route: 058
     Dates: start: 202010
  2. ORENCIA [Suspect]
     Active Substance: ABATACEPT
     Indication: Polyarthritis

REACTIONS (3)
  - Polyarthritis [Recovering/Resolving]
  - Rheumatoid arthritis [Recovering/Resolving]
  - Condition aggravated [Recovering/Resolving]
